FAERS Safety Report 16349700 (Version 1)
Quarter: 2019Q2

REPORT INFORMATION
  Report Type: Spontaneous
  Country: GB (occurrence: GB)
  Receive Date: 20190523
  Receipt Date: 20190523
  Transmission Date: 20190711
  Serious: Yes (Disabling)
  Sender: FDA-Public Use
  Company Number: GB-ASCEND THERAPEUTICS-2067386

PATIENT
  Age: 50 Year
  Sex: Female

DRUGS (4)
  1. OXYTETRACYCLINE?(DRUG USE FOR UNKNOWN INDICATION) [Concomitant]
     Route: 065
     Dates: start: 20180719, end: 20180802
  2. BENZOYL PEROXIDE. [Concomitant]
     Active Substance: BENZOYL PEROXIDE
     Dates: start: 20180202
  3. ESTROGEL [Suspect]
     Active Substance: ESTRADIOL
     Indication: PRODUCT USED FOR UNKNOWN INDICATION
     Route: 065
     Dates: start: 20181002, end: 20181016
  4. MIRTAZAPINE. [Concomitant]
     Active Substance: MIRTAZAPINE
     Route: 065
     Dates: start: 20180719, end: 20180816

REACTIONS (2)
  - Eye swelling [Recovered/Resolved]
  - Vulvovaginal pain [Unknown]
